FAERS Safety Report 9570391 (Version 1)
Quarter: 2013Q3

REPORT INFORMATION
  Report Type: Spontaneous
  Country: US (occurrence: US)
  Receive Date: 20130930
  Receipt Date: 20130930
  Transmission Date: 20140515
  Serious: No
  Sender: FDA-Public Use
  Company Number: US-AMGEN-USASP2013064744

PATIENT
  Age: 66 Year
  Sex: Female
  Weight: 73.02 kg

DRUGS (20)
  1. ENBREL [Suspect]
     Indication: PRODUCT USED FOR UNKNOWN INDICATION
     Dosage: 50 MG, QWK
     Route: 058
  2. FLEXERIL                           /00428402/ [Concomitant]
     Dosage: 10 MG, UNK
  3. TYLENOL WITH CODEIN #3 [Concomitant]
     Dosage: UNK
  4. PREDNISONE [Concomitant]
     Dosage: 1 MG, UNK
  5. LORAZEPAM [Concomitant]
     Dosage: 0.5 MG, UNK
  6. WELLBUTRIN [Concomitant]
     Dosage: 100 MG, UNK
  7. METOPROLOL [Concomitant]
     Dosage: 100 MG, UNK
  8. PRILOSEC                           /00661201/ [Concomitant]
     Dosage: 20 MG, UNK
  9. POTASSIUM [Concomitant]
     Dosage: 75 MG, UNK
  10. NIACIN [Concomitant]
     Dosage: 125 MG, UNK
  11. FISH OIL [Concomitant]
     Dosage: UNK
  12. ZETIA [Concomitant]
     Dosage: 10 MG, UNK
  13. CALCIUM [Concomitant]
     Dosage: 500 UNK, UNK
  14. VITAMIN C                          /00008001/ [Concomitant]
     Dosage: 500 MG, UNK
  15. MULTIVITAMIN                       /07504101/ [Concomitant]
     Dosage: UNK
  16. COQ-10 [Concomitant]
     Dosage: 100 MG, UNK
  17. ASPIRIN [Concomitant]
     Dosage: 81 MG, UNK
  18. STOOL SOFTENER [Concomitant]
     Dosage: 100 MG, UNK
  19. METHOTREXATE [Concomitant]
     Dosage: 20 MG, UNK
  20. LEUCOVORIN                         /00566701/ [Concomitant]
     Dosage: 350 MG, UNK

REACTIONS (1)
  - Nasopharyngitis [Recovered/Resolved]
